FAERS Safety Report 8171521-3 (Version None)
Quarter: 2012Q1

REPORT INFORMATION
  Report Type: 
  Country: None (occurrence: None)
  Receive Date: 20120228
  Receipt Date: 20120221
  Transmission Date: 20120608
  Serious: Yes (Other)
  Sender: FDA-Public Use
  Company Number: FR-ABBOTT-12P-056-0907516-00

PATIENT
  Age: 48 Year
  Sex: Male

DRUGS (7)
  1. NEXIUM [Concomitant]
     Indication: PRODUCT USED FOR UNKNOWN INDICATION
     Route: 048
  2. VALSARTAN  AND HYDROCHLOROTHIAZIDE [Concomitant]
     Indication: HYPERTENSION
     Dosage: DF: 80/12.5 MG, 1 IN 1 DAY
     Route: 048
     Dates: start: 20070101
  3. HUMIRA [Suspect]
     Indication: ANKYLOSING SPONDYLITIS
     Dates: start: 20100101
  4. FINASTERIDE [Concomitant]
     Indication: PROSTATISM
     Route: 048
     Dates: start: 20100101
  5. ALFUZOSIN HCL [Concomitant]
     Indication: PROSTATISM
     Route: 048
     Dates: start: 20100101
  6. PRAVASTATINE SODIUM [Concomitant]
     Indication: DYSLIPIDAEMIA
     Route: 048
     Dates: start: 20070101
  7. PREVISCAN [Concomitant]
     Indication: PRODUCT USED FOR UNKNOWN INDICATION
     Route: 048
     Dates: start: 20070101

REACTIONS (2)
  - DYSPNOEA EXERTIONAL [None]
  - MITRAL VALVE INCOMPETENCE [None]
